FAERS Safety Report 23880795 (Version 1)
Quarter: 2024Q2

REPORT INFORMATION
  Report Type: Spontaneous
  Country: IT (occurrence: IT)
  Receive Date: 20240521
  Receipt Date: 20240521
  Transmission Date: 20240716
  Serious: Yes (Other)
  Sender: FDA-Public Use
  Company Number: None

PATIENT
  Age: 69 Year
  Sex: Female

DRUGS (4)
  1. EYLEA [Suspect]
     Active Substance: AFLIBERCEPT
     Indication: Myopic chorioretinal degeneration
     Dosage: 1 DF, SOLUTION FOR INJECTION, 40 MG/ML
     Route: 031
     Dates: start: 20230518, end: 20230518
  2. EYLEA [Suspect]
     Active Substance: AFLIBERCEPT
     Dosage: 1 DF, SOLUTION FOR INJECTION, 40 MG/ML
     Route: 031
     Dates: start: 20230622, end: 20230622
  3. EYLEA [Suspect]
     Active Substance: AFLIBERCEPT
     Dosage: 1 DF, SOLUTION FOR INJECTION , 40 MG/ML
     Route: 031
     Dates: start: 20230803, end: 20230803
  4. EYLEA [Suspect]
     Active Substance: AFLIBERCEPT
     Dosage: 1 DF, SOLUTION FOR INJECTION, 40 MG/ML
     Route: 031
     Dates: start: 20240404, end: 20240404

REACTIONS (4)
  - Condition aggravated [Not Recovered/Not Resolved]
  - Retinal fovea disorder [Not Recovered/Not Resolved]
  - Detachment of macular retinal pigment epithelium [Not Recovered/Not Resolved]
  - Therapeutic product effect decreased [Not Recovered/Not Resolved]

NARRATIVE: CASE EVENT DATE: 20240418
